FAERS Safety Report 6614413-0 (Version None)
Quarter: 2010Q1

REPORT INFORMATION
  Report Type: 
  Country: None (occurrence: None)
  Receive Date: 20100303
  Receipt Date: 20100303
  Transmission Date: 20100710
  Serious: Yes (Other)
  Sender: FDA-Public Use
  Company Number: None

PATIENT
  Age: 39 Year
  Sex: Female
  Weight: 81.4 kg

DRUGS (9)
  1. SAVELLA [Suspect]
     Indication: FIBROMYALGIA
     Dosage: SAVELLA 50MG TWIE DAILY ORALLY
     Route: 048
     Dates: start: 20100112, end: 20100225
  2. BENICARE [Concomitant]
  3. FLUOXETINE [Concomitant]
  4. METOPROLOL TARTRATE [Concomitant]
  5. FUROSEMIDE [Concomitant]
  6. FLEXERIL [Concomitant]
  7. REQUIP [Concomitant]
  8. LIPITOR [Concomitant]
  9. NABUMETONE [Concomitant]

REACTIONS (1)
  - BLOOD PRESSURE INCREASED [None]
